FAERS Safety Report 8535027 (Version 5)
Quarter: 2013Q2

REPORT INFORMATION
  Report Type: Spontaneous
  Country: US (occurrence: US)
  Receive Date: 20120427
  Receipt Date: 20130517
  Transmission Date: 20140414
  Serious: Yes (Death, Other)
  Sender: FDA-Public Use
  Company Number: US-PFIZER INC-2012101674

PATIENT
  Age: 68 Year
  Sex: Female
  Weight: 33.56 kg

DRUGS (4)
  1. REVATIO [Suspect]
     Indication: PULMONARY ARTERIAL HYPERTENSION
     Dosage: 40 MG, 3X/DAY
     Dates: end: 201305
  2. GABAPENTIN [Suspect]
     Dosage: UNK
  3. TRACLEER [Concomitant]
     Indication: PULMONARY ARTERIAL HYPERTENSION
     Dosage: 125 MG, 2X/DAY
  4. FLOLAN [Concomitant]
     Indication: PULMONARY ARTERIAL HYPERTENSION
     Dosage: 106 MG/KG/MIN CONTINUOUS FLOW

REACTIONS (6)
  - Death [Fatal]
  - Dyspnoea [Unknown]
  - Underweight [Unknown]
  - Nasal congestion [Unknown]
  - Eyelid oedema [Unknown]
  - Headache [Unknown]
